FAERS Safety Report 24445369 (Version 1)
Quarter: 2024Q4

REPORT INFORMATION
  Report Type: Spontaneous
  Country: CH (occurrence: CH)
  Receive Date: 20241016
  Receipt Date: 20241016
  Transmission Date: 20250114
  Serious: Yes (Other)
  Sender: SANOFI AVENTIS
  Company Number: CH-SA-2024SA269282

PATIENT
  Age: 7 Year
  Sex: Female
  Weight: 23.8 kg

DRUGS (19)
  1. CABLIVI [Suspect]
     Active Substance: CAPLACIZUMAB-YHDP
     Indication: Immune thrombocytopenia
     Dosage: 5 MG, QD, ON  DAY 12
     Route: 042
     Dates: start: 2023, end: 2023
  2. CABLIVI [Suspect]
     Active Substance: CAPLACIZUMAB-YHDP
     Indication: Immune thrombocytopenia
     Dosage: 5 MG, QD, ON  DAY 12
     Route: 042
     Dates: start: 2023, end: 2023
  3. CABLIVI [Suspect]
     Active Substance: CAPLACIZUMAB-YHDP
     Indication: Immune thrombocytopenia
     Dosage: 5 MG, QD, ON  DAY 12
     Route: 042
     Dates: start: 2023, end: 2023
  4. CABLIVI [Suspect]
     Active Substance: CAPLACIZUMAB-YHDP
     Indication: Immune thrombocytopenia
     Dosage: 5 MG, QD, ON  DAY 12
     Route: 042
     Dates: start: 2023, end: 2023
  5. CABLIVI [Suspect]
     Active Substance: CAPLACIZUMAB-YHDP
     Dosage: 5 MG, QD, FROM DAY 13 TO 54
     Route: 058
     Dates: start: 2023
  6. CABLIVI [Suspect]
     Active Substance: CAPLACIZUMAB-YHDP
     Dosage: 5 MG, QD, FROM DAY 13 TO 54
     Route: 058
     Dates: start: 2023
  7. CABLIVI [Suspect]
     Active Substance: CAPLACIZUMAB-YHDP
     Dosage: 5 MG, QD, FROM DAY 13 TO 54
     Route: 058
     Dates: start: 2023
  8. CABLIVI [Suspect]
     Active Substance: CAPLACIZUMAB-YHDP
     Dosage: 5 MG, QD, FROM DAY 13 TO 54
     Route: 058
     Dates: start: 2023
  9. CABLIVI [Suspect]
     Active Substance: CAPLACIZUMAB-YHDP
     Dosage: 5 MG, QOD, FROM  DAYS 55?64
     Route: 058
     Dates: start: 2023
  10. CABLIVI [Suspect]
     Active Substance: CAPLACIZUMAB-YHDP
     Dosage: 5 MG, QOD, FROM  DAYS 55?64
     Route: 058
     Dates: start: 2023
  11. CABLIVI [Suspect]
     Active Substance: CAPLACIZUMAB-YHDP
     Dosage: 5 MG, QOD, FROM  DAYS 55?64
     Route: 058
     Dates: start: 2023
  12. CABLIVI [Suspect]
     Active Substance: CAPLACIZUMAB-YHDP
     Dosage: 5 MG, QOD, FROM  DAYS 55?64
     Route: 058
     Dates: start: 2023
  13. FRESH FROZEN PLASMA [Concomitant]
     Active Substance: HUMAN PLASMA
     Indication: Central venous catheterisation
     Dosage: UNK
     Dates: start: 2023
  14. METHYLPREDNISOLONE [Concomitant]
     Active Substance: METHYLPREDNISOLONE
     Indication: Immune thrombocytopenia
     Dosage: 1.5 MG/KG, QD
     Route: 042
     Dates: start: 2023
  15. METHYLPREDNISOLONE [Concomitant]
     Active Substance: METHYLPREDNISOLONE
     Dosage: 15 MG/KG, QD, PULSE ON DAY 7
     Route: 042
     Dates: start: 2023
  16. RITUXIMAB [Concomitant]
     Active Substance: RITUXIMAB
     Indication: Immune thrombocytopenia
     Dosage: 375 MG/M2, OND7, D10, D15, AND D21
     Route: 041
     Dates: start: 20230928, end: 20231012
  17. PREDNISONE [Concomitant]
     Active Substance: PREDNISONE
     Indication: Immune thrombocytopenia
     Dosage: 1 MG/KG
     Route: 048
     Dates: start: 2023, end: 2023
  18. PREDNISONE [Concomitant]
     Active Substance: PREDNISONE
     Dosage: SLOWLY TAPERED
     Route: 048
     Dates: start: 2023
  19. HUMAN RED BLOOD CELL [Concomitant]
     Active Substance: HUMAN RED BLOOD CELL
     Indication: Central venous catheterisation
     Dosage: 1 U, ONE PACKED RED CELL UNIT
     Dates: start: 2023

REACTIONS (10)
  - Injection site erosion [Not Recovered/Not Resolved]
  - Skin irritation [Not Recovered/Not Resolved]
  - Skin lesion [Not Recovered/Not Resolved]
  - Injection site reaction [Not Recovered/Not Resolved]
  - Off label use [Not Recovered/Not Resolved]
  - Product administered to patient of inappropriate age [Not Recovered/Not Resolved]
  - Injection site pain [Not Recovered/Not Resolved]
  - Injection site erythema [Not Recovered/Not Resolved]
  - Injection site bruising [Not Recovered/Not Resolved]
  - Petechiae [Unknown]

NARRATIVE: CASE EVENT DATE: 20230101
